FAERS Safety Report 6552326-3 (Version None)
Quarter: 2010Q1

REPORT INFORMATION
  Report Type: 
  Country: None (occurrence: None)
  Receive Date: 20100126
  Receipt Date: 20100115
  Transmission Date: 20100710
  Serious: Yes (Life-Threatening, Hospitalization, Other)
  Sender: FDA-Public Use
  Company Number: US-SANOFI-AVENTIS-2010SA000684

PATIENT
  Age: 61 Year
  Sex: Female
  Weight: 100 kg

DRUGS (8)
  1. PLAVIX [Suspect]
     Indication: PERCUTANEOUS CORONARY INTERVENTION
     Dosage: 4 CAPSULES POST PROCEEDURE
     Route: 048
     Dates: start: 20080520, end: 20080520
  2. PLACEBO [Suspect]
     Indication: PERCUTANEOUS CORONARY INTERVENTION
     Dosage: 4 CAPSULES PRE-PROCEEDURE
     Route: 048
     Dates: start: 20080520, end: 20080520
  3. INVESTIGATIONAL DRUG [Suspect]
     Indication: PERCUTANEOUS CORONARY INTERVENTION
     Dosage: 151.98 ML INFUSION FROM 16:11 TO 18:40
     Route: 041
     Dates: start: 20080520, end: 20080520
  4. INVESTIGATIONAL DRUG [Suspect]
     Route: 040
     Dates: start: 20080520, end: 20080520
  5. INTEGRILIN [Concomitant]
     Dates: start: 20080520, end: 20080522
  6. FENTANYL [Concomitant]
     Dates: start: 20080520, end: 20080520
  7. ASPIRIN [Concomitant]
     Dates: start: 20080520
  8. HEPARIN [Concomitant]
     Dates: start: 20080520, end: 20080520

REACTIONS (2)
  - CHEST PAIN [None]
  - CORONARY ARTERY DISSECTION [None]
